FAERS Safety Report 10403093 (Version 2)
Quarter: 2014Q3

REPORT INFORMATION
  Report Type: Spontaneous
  Country: US (occurrence: US)
  Receive Date: 20140822
  Receipt Date: 20140822
  Transmission Date: 20150326
  Serious: Yes (Other)
  Sender: FDA-Public Use
  Company Number: US-GLAXOSMITHKLINE-A0731263A

PATIENT
  Sex: Female
  Weight: 143.2 kg

DRUGS (2)
  1. GLUCOTROL XL [Concomitant]
     Active Substance: GLIPIZIDE
     Dates: start: 1997
  2. AVANDIA [Suspect]
     Active Substance: ROSIGLITAZONE MALEATE
     Indication: TYPE 2 DIABETES MELLITUS
     Dosage: 4MG TWICE PER DAY
     Route: 048
     Dates: start: 20020103, end: 20051217

REACTIONS (3)
  - Myocardial infarction [Unknown]
  - Cerebrovascular accident [Not Recovered/Not Resolved]
  - Cardiac failure congestive [Unknown]
